FAERS Safety Report 5832175-1 (Version None)
Quarter: 2008Q3

REPORT INFORMATION
  Report Type: 
  Country: None (occurrence: None)
  Receive Date: 20080731
  Receipt Date: 20080731
  Transmission Date: 20090109
  Serious: Yes (Other)
  Sender: FDA-Public Use
  Company Number: None

PATIENT
  Age: 77 Year
  Sex: Female
  Weight: 124.7392 kg

DRUGS (1)
  1. ORENCIA [Suspect]
     Indication: RHEUMATOID ARTHRITIS
     Dosage: 1000MG EVERY 4 WEEKS IV
     Route: 042
     Dates: start: 20080401, end: 20080715

REACTIONS (7)
  - CHILLS [None]
  - GASTRIC DISORDER [None]
  - HEADACHE [None]
  - NEOPLASM RECURRENCE [None]
  - PAIN IN EXTREMITY [None]
  - PROCEDURAL PAIN [None]
  - PYREXIA [None]
